FAERS Safety Report 25970397 (Version 2)
Quarter: 2025Q4

REPORT INFORMATION
  Report Type: Spontaneous
  Country: US (occurrence: US)
  Receive Date: 20251028
  Receipt Date: 20251113
  Transmission Date: 20260117
  Serious: Yes (Hospitalization, Other)
  Sender: ALKEM
  Company Number: None

PATIENT
  Age: 40 Year
  Sex: Female

DRUGS (1)
  1. TACROLIMUS [Suspect]
     Active Substance: TACROLIMUS
     Indication: Immunosuppressant drug therapy
     Dosage: 4 MILLIGRAM, BID (EVERY 12 HOUR)
     Route: 065

REACTIONS (3)
  - Splenic marginal zone lymphoma [Recovered/Resolved]
  - Liver transplant rejection [Unknown]
  - Cytomegalovirus viraemia [Unknown]
